FAERS Safety Report 23178809 (Version 1)
Quarter: 2023Q4

REPORT INFORMATION
  Report Type: Spontaneous
  Country: HR (occurrence: HR)
  Receive Date: 20231113
  Receipt Date: 20231113
  Transmission Date: 20240110
  Serious: Yes (Other)
  Sender: FDA-Public Use
  Company Number: HR-JNJFOC-20231032911

PATIENT
  Age: 63 Year
  Sex: Male

DRUGS (29)
  1. CISPLATIN [Suspect]
     Active Substance: CISPLATIN
     Indication: Plasma cell myeloma
     Dosage: 1 TIME AS A PART OF KD+PACE REGIMEN
     Dates: start: 202303
  2. CISPLATIN [Suspect]
     Active Substance: CISPLATIN
     Indication: Light chain disease
  3. LENALIDOMIDE [Suspect]
     Active Substance: LENALIDOMIDE
     Indication: Light chain disease
     Dosage: 5 TIMES AS A PART OF DRD REGIMEN
     Dates: start: 202208, end: 202302
  4. LENALIDOMIDE [Suspect]
     Active Substance: LENALIDOMIDE
     Indication: Plasma cell myeloma
  5. MELPHALAN [Suspect]
     Active Substance: MELPHALAN
     Indication: Plasma cell myeloma
     Dosage: 3 TIMES, AS A PART OF KD+MP REGIMEN
     Dates: start: 202304, end: 202306
  6. MELPHALAN [Suspect]
     Active Substance: MELPHALAN
     Indication: Light chain disease
  7. DOXORUBICIN HYDROCHLORIDE [Suspect]
     Active Substance: DOXORUBICIN HYDROCHLORIDE
     Indication: Plasma cell myeloma
     Dosage: 1 TIME AS A PART OF KD+ PACE REGIMEN
     Dates: start: 202303
  8. DOXORUBICIN HYDROCHLORIDE [Suspect]
     Active Substance: DOXORUBICIN HYDROCHLORIDE
     Indication: Light chain disease
     Dosage: 3 TIMES AS A PART OF VAD+ IXAZOMIB REGIMEN
     Dates: start: 202306, end: 202308
  9. DEXAMETHASONE [Suspect]
     Active Substance: DEXAMETHASONE
     Indication: Light chain disease
     Dosage: 3 TIMES AS A PART OF VAD+ IXAZOMIB REGIMEN
     Dates: start: 202306, end: 202308
  10. DEXAMETHASONE [Suspect]
     Active Substance: DEXAMETHASONE
     Indication: Plasma cell myeloma
     Dosage: 5 TIMES AS A PART OF DRD REGIMEN
     Dates: start: 202208, end: 202302
  11. DEXAMETHASONE [Suspect]
     Active Substance: DEXAMETHASONE
     Dosage: 1 TIME AS A PART OF KD+PACE REGIMEN
     Dates: start: 202303
  12. DEXAMETHASONE [Suspect]
     Active Substance: DEXAMETHASONE
     Dosage: 5 TIMES AS A PART OF VCD REGIMEN
     Dates: start: 202203, end: 202205
  13. DEXAMETHASONE [Suspect]
     Active Substance: DEXAMETHASONE
     Dosage: 3 TIMES, AS A PART OF KD+MP REGIMEN
     Dates: start: 202304, end: 202306
  14. IXAZOMIB [Suspect]
     Active Substance: IXAZOMIB
     Indication: Plasma cell myeloma
     Dosage: 3 TIMES AS A PART OF VAD+ IXAZOMIB REGIMEN
     Dates: start: 202306, end: 202308
  15. IXAZOMIB [Suspect]
     Active Substance: IXAZOMIB
     Indication: Light chain disease
  16. PREDNISONE [Suspect]
     Active Substance: PREDNISONE
     Indication: Plasma cell myeloma
     Dosage: 3 TIMES, AS A PART OF KD+MP REGIMEN
     Dates: start: 202304, end: 202306
  17. PREDNISONE [Suspect]
     Active Substance: PREDNISONE
     Indication: Light chain disease
  18. CYCLOPHOSPHAMIDE [Suspect]
     Active Substance: CYCLOPHOSPHAMIDE
     Indication: Light chain disease
     Dosage: 1 TIME AS A PART OF KD+ PACE REGIMEN
     Dates: start: 202303
  19. CYCLOPHOSPHAMIDE [Suspect]
     Active Substance: CYCLOPHOSPHAMIDE
     Indication: Plasma cell myeloma
     Dosage: 5 TIMES AS A PART OF VCD REGIMEN
     Dates: start: 202203, end: 202205
  20. VELCADE [Suspect]
     Active Substance: BORTEZOMIB
     Indication: Plasma cell myeloma
     Dosage: 5 TIMES AS A PART OF VCD REGIMEN
     Dates: start: 202203, end: 202205
  21. VELCADE [Suspect]
     Active Substance: BORTEZOMIB
     Indication: Light chain disease
  22. ETOPOSIDE [Suspect]
     Active Substance: ETOPOSIDE
     Indication: Plasma cell myeloma
     Dosage: 1 TIME AS A PART OF KD+PACE REGIMEN
     Dates: start: 202303
  23. ETOPOSIDE [Suspect]
     Active Substance: ETOPOSIDE
     Indication: Light chain disease
  24. CARFILZOMIB [Suspect]
     Active Substance: CARFILZOMIB
     Indication: Plasma cell myeloma
     Dosage: 3 TIMES, AS A PART OF KD+MP REGIMEN
     Dates: start: 202304, end: 202306
  25. CARFILZOMIB [Suspect]
     Active Substance: CARFILZOMIB
     Indication: Light chain disease
     Dosage: 1 TIME AS A PART OF KD+PACE REGIMEN
     Dates: start: 202303
  26. DARZALEX [Suspect]
     Active Substance: DARATUMUMAB
     Indication: Plasma cell myeloma
     Dosage: 5 TIMES AS A PART OF DRD REGIMEN
     Dates: start: 202208, end: 202302
  27. DARZALEX [Suspect]
     Active Substance: DARATUMUMAB
     Indication: Light chain disease
  28. VINCRISTINE [Suspect]
     Active Substance: VINCRISTINE
     Indication: Plasma cell myeloma
     Dosage: 3 TIMES AS A PART OF VAD+ IXAZOMIB REGIMEN
     Dates: start: 202306, end: 202308
  29. VINCRISTINE [Suspect]
     Active Substance: VINCRISTINE
     Indication: Light chain disease

REACTIONS (4)
  - Therapy partial responder [Unknown]
  - Plasma cell myeloma [Unknown]
  - Febrile neutropenia [Unknown]
  - Light chain disease [Unknown]
